FAERS Safety Report 9939844 (Version 1)
Quarter: 2014Q1

REPORT INFORMATION
  Report Type: Spontaneous
  Country: US (occurrence: US)
  Receive Date: 20140303
  Receipt Date: 20140303
  Transmission Date: 20141002
  Serious: No
  Sender: FDA-Public Use
  Company Number: US-ABBVIE-13P-163-1036466-00

PATIENT
  Sex: Male

DRUGS (1)
  1. HUMIRA [Suspect]
     Indication: CROHN^S DISEASE

REACTIONS (5)
  - Gastrointestinal pain [Unknown]
  - Abdominal pain lower [Unknown]
  - Crohn^s disease [Unknown]
  - Rash [Unknown]
  - Autoimmune disorder [Unknown]
